FAERS Safety Report 5474143-8 (Version None)
Quarter: 2007Q3

REPORT INFORMATION
  Report Type: 
  Country: None (occurrence: None)
  Receive Date: 20070830
  Receipt Date: 20070504
  Transmission Date: 20080115
  Serious: Yes (Other)
  Sender: FDA-Public Use
  Company Number: 200713290US

PATIENT
  Age: 51 Year
  Sex: Male

DRUGS (12)
  1. LASIX [Suspect]
     Dates: start: 20070223
  2. LASIX [Suspect]
     Dates: start: 20061021, end: 20070223
  3. LASIX [Suspect]
     Dosage: 20 MG QD
     Dates: end: 20061020
  4. LASIX [Suspect]
     Indication: DEPRESSION
     Dosage: 10 MG QD PO
     Route: 048
     Dates: start: 20070101, end: 20070301
  5. LEXAPRO [Suspect]
     Indication: DEPRESSION
     Dosage: 5 MG QD PO
     Route: 048
     Dates: start: 20061201, end: 20070101
  6. SPIRONOLACTONE [Concomitant]
  7. QUININE [Concomitant]
  8. NEOMYCIN [Concomitant]
  9. PREVACID [Concomitant]
  10. MAGNESIUM SULFATE [Concomitant]
  11. LACTULOSE [Concomitant]
  12. OXAZEPAM [Concomitant]

REACTIONS (2)
  - HYPONATRAEMIA [None]
  - TREMOR [None]
